FAERS Safety Report 25528121 (Version 2)
Quarter: 2025Q3

REPORT INFORMATION
  Report Type: Spontaneous
  Country: JP (occurrence: JP)
  Receive Date: 20250708
  Receipt Date: 20250804
  Transmission Date: 20251020
  Serious: Yes (Other)
  Sender: TAKEDA
  Company Number: JP-TAKEDA-2025TUS061285

PATIENT
  Age: 36 Year
  Sex: Female

DRUGS (4)
  1. LIALDA [Suspect]
     Active Substance: MESALAMINE
     Indication: Colitis ulcerative
     Dosage: 4800 MILLIGRAM, QD
  2. Cortiment [Concomitant]
     Indication: Colitis ulcerative
  3. FILGOTINIB MALEATE [Concomitant]
     Active Substance: FILGOTINIB MALEATE
     Indication: Colitis ulcerative
  4. VEDOLIZUMAB [Concomitant]
     Active Substance: VEDOLIZUMAB
     Indication: Colitis ulcerative

REACTIONS (4)
  - Haematochezia [Unknown]
  - Colitis ulcerative [Unknown]
  - Abdominal pain [Unknown]
  - Diarrhoea [Unknown]
